FAERS Safety Report 7130868-X (Version None)
Quarter: 2010Q4

REPORT INFORMATION
  Report Type: 
  Country: None (occurrence: None)
  Receive Date: 20101201
  Receipt Date: 20101122
  Transmission Date: 20110411
  Serious: Yes (Hospitalization)
  Sender: FDA-Public Use
  Company Number: US-ASTRAZENECA-2010SE55677

PATIENT
  Age: 72 Year
  Sex: Male

DRUGS (5)
  1. NEXIUM [Suspect]
     Route: 048
  2. METFORMIN HCL [Concomitant]
  3. ACTOS [Concomitant]
  4. TRAMADOL HCL [Concomitant]
  5. SULFAMETHOXACOLE [Concomitant]

REACTIONS (2)
  - GOITRE [None]
  - PROSTATIC OPERATION [None]
